FAERS Safety Report 24280276 (Version 1)
Quarter: 2024Q3

REPORT INFORMATION
  Report Type: Spontaneous
  Country: AE (occurrence: AE)
  Receive Date: 20240904
  Receipt Date: 20240904
  Transmission Date: 20241016
  Serious: Yes (Death, Hospitalization)
  Sender: AMGEN
  Company Number: AE-AMGEN-ARESP2024174684

PATIENT

DRUGS (6)
  1. ADALIMUMAB [Suspect]
     Active Substance: ADALIMUMAB
     Indication: Rheumatoid arthritis
     Dosage: 40 MILLIGRAM, Q2WK
     Route: 065
  2. ADALIMUMAB [Suspect]
     Active Substance: ADALIMUMAB
     Indication: Psoriasis
  3. EVOLOCUMAB [Suspect]
     Active Substance: EVOLOCUMAB
     Indication: Hyperlipidaemia
     Dosage: 140 MILLIGRAM, Q2WK
     Route: 065
  4. ROMOSOZUMAB [Suspect]
     Active Substance: ROMOSOZUMAB
     Indication: Osteoporosis
     Dosage: 105 MILLIGRAM, QMO
     Route: 065
  5. ROMOSOZUMAB [Suspect]
     Active Substance: ROMOSOZUMAB
     Dosage: 210 MILLIGRAM, QMO
     Route: 065
  6. PROLIA [Suspect]
     Active Substance: DENOSUMAB
     Indication: Osteoporosis
     Dosage: 60 MILLIGRAM, Q6MO
     Route: 065

REACTIONS (7)
  - Death [Fatal]
  - Infection [Unknown]
  - Pain [Unknown]
  - Chronic disease [Unknown]
  - Surgery [Unknown]
  - Treatment noncompliance [Unknown]
  - Adverse drug reaction [Unknown]
